FAERS Safety Report 8102423-6 (Version None)
Quarter: 2012Q1

REPORT INFORMATION
  Report Type: 
  Country: None (occurrence: None)
  Receive Date: 20120131
  Receipt Date: 20120131
  Transmission Date: 20120608
  Serious: Yes (Other)
  Sender: FDA-Public Use
  Company Number: None

PATIENT
  Sex: Female
  Weight: 62.5964 kg

DRUGS (2)
  1. BONIVA [Suspect]
     Indication: BONE DENSITY DECREASED
     Dosage: 150 MG MONTHLY ORAL
     Route: 048
     Dates: start: 20111010
  2. BONIVA [Suspect]
     Indication: BONE DENSITY DECREASED
     Dosage: 150 MG MONTHLY ORAL
     Route: 048
     Dates: start: 20111110

REACTIONS (4)
  - PAIN IN EXTREMITY [None]
  - ARTHRALGIA [None]
  - JOINT SWELLING [None]
  - OEDEMA PERIPHERAL [None]
